FAERS Safety Report 9982927 (Version 1)
Quarter: 2014Q1

REPORT INFORMATION
  Report Type: Report from Study
  Country: US (occurrence: US)
  Receive Date: 20140307
  Receipt Date: 20140307
  Transmission Date: 20141002
  Serious: No
  Sender: FDA-Public Use
  Company Number: US-ABBVIE-13P-163-1177101-00

PATIENT
  Sex: Female
  Weight: 57.2 kg

DRUGS (11)
  1. HUMIRA [Suspect]
     Indication: COLITIS
     Route: 050
     Dates: start: 20131121, end: 20131121
  2. HUMIRA [Suspect]
     Indication: GASTROENTERITIS RADIATION
  3. NOVOLOG [Concomitant]
     Indication: DIABETES MELLITUS
  4. LANTUS [Concomitant]
     Indication: PRODUCT USED FOR UNKNOWN INDICATION
  5. LEXAPRO [Concomitant]
     Indication: ANGER
  6. LYRICA [Concomitant]
     Indication: NEUROPATHY PERIPHERAL
  7. LEXAPRO [Concomitant]
     Indication: ANGER
  8. XANAX [Concomitant]
     Indication: ANXIETY
  9. CELEBREX [Concomitant]
     Indication: PRODUCT USED FOR UNKNOWN INDICATION
  10. ZANTAC [Concomitant]
     Indication: PRODUCT USED FOR UNKNOWN INDICATION
  11. LOMOTIL [Concomitant]
     Indication: PRODUCT USED FOR UNKNOWN INDICATION

REACTIONS (2)
  - Malaise [Recovering/Resolving]
  - Nasopharyngitis [Recovering/Resolving]
